FAERS Safety Report 10145397 (Version 1)
Quarter: 2014Q2

REPORT INFORMATION
  Report Type: Spontaneous
  Country: US (occurrence: US)
  Receive Date: 20140501
  Receipt Date: 20140501
  Transmission Date: 20141212
  Serious: No
  Sender: FDA-Public Use
  Company Number: US-BIOGENIDEC-2014BI038060

PATIENT
  Sex: Female
  Weight: 67 kg

DRUGS (2)
  1. TECFIDERA [Suspect]
     Indication: PRODUCT USED FOR UNKNOWN INDICATION
     Route: 048
  2. REBIF [Concomitant]
     Dates: start: 2010, end: 2013

REACTIONS (3)
  - Headache [Unknown]
  - General physical health deterioration [Unknown]
  - Vitamin D deficiency [Unknown]
